FAERS Safety Report 22536300 (Version 1)
Quarter: 2023Q2

REPORT INFORMATION
  Report Type: Spontaneous
  Country: US (occurrence: US)
  Receive Date: 20230608
  Receipt Date: 20230608
  Transmission Date: 20230721
  Serious: No
  Sender: FDA-Public Use
  Company Number: US-SA-SAC20230607001224

PATIENT
  Sex: Male

DRUGS (2)
  1. DUPIXENT [Suspect]
     Active Substance: DUPILUMAB
     Dosage: 300 MG, FREQUENCY: OTHER
     Route: 058
  2. PREDNISONE [Suspect]
     Active Substance: PREDNISONE

REACTIONS (3)
  - Rash pruritic [Unknown]
  - Rash erythematous [Unknown]
  - Skin swelling [Unknown]
